FAERS Safety Report 21052253 (Version 5)
Quarter: 2023Q1

REPORT INFORMATION
  Report Type: Report from Study
  Country: US (occurrence: US)
  Receive Date: 20220707
  Receipt Date: 20230220
  Transmission Date: 20230418
  Serious: No
  Sender: FDA-Public Use
  Company Number: US-NOVARTISTESTPH-NVSC2022US153904

PATIENT
  Age: 72 Year
  Sex: Female

DRUGS (3)
  1. KESIMPTA [Suspect]
     Active Substance: OFATUMUMAB
     Indication: Product used for unknown indication
     Dosage: 20 MG, QMO
     Route: 030
     Dates: start: 20220615, end: 20220701
  2. KESIMPTA [Suspect]
     Active Substance: OFATUMUMAB
     Dosage: UNK
     Route: 065
  3. KESIMPTA [Suspect]
     Active Substance: OFATUMUMAB
     Dosage: 20 MG
     Route: 058

REACTIONS (5)
  - COVID-19 [Unknown]
  - Fall [Unknown]
  - Concussion [Unknown]
  - Eye contusion [Unknown]
  - Incorrect route of product administration [Unknown]

NARRATIVE: CASE EVENT DATE: 20221231
